FAERS Safety Report 8143701-4 (Version None)
Quarter: 2012Q1

REPORT INFORMATION
  Report Type: 
  Country: None (occurrence: None)
  Receive Date: 20120103
  Receipt Date: 20111007
  Transmission Date: 20120608
  Serious: No
  Sender: FDA-Public Use
  Company Number: AE-2011-002133

PATIENT
  Age: 69 Year
  Sex: Female
  Weight: 86.1834 kg

DRUGS (5)
  1. RIBAVIRIN [Concomitant]
  2. INCIVEK [Suspect]
     Dosage: 2250 MG (750 MG, 1 IN 8 HR), ORAL
     Route: 048
     Dates: start: 20110731
  3. LANTUS [Concomitant]
  4. PEGASYS [Concomitant]
  5. APIDRA (INSULIN) [Concomitant]

REACTIONS (3)
  - NAUSEA [None]
  - RASH [None]
  - TRANSFUSION [None]
